FAERS Safety Report 8730166 (Version 3)
Quarter: 2012Q4

REPORT INFORMATION
  Report Type: Report from Study
  Country: GB (occurrence: GB)
  Receive Date: 20120817
  Receipt Date: 20120831
  Transmission Date: 20130627
  Serious: Yes (Hospitalization)
  Sender: FDA-Public Use
  Company Number: GB-ABBOTT-12P-167-0967255-02

PATIENT
  Age: 19 Year
  Sex: Female
  Weight: 57 kg

DRUGS (12)
  1. HUMIRA [Suspect]
     Indication: CROHN^S DISEASE
     Route: 058
     Dates: start: 200909, end: 200909
  2. HUMIRA [Suspect]
     Route: 058
  3. HUMIRA [Suspect]
     Route: 058
  4. HUMIRA [Suspect]
     Route: 058
     Dates: start: 20100209
  5. MERCAPTOPURINE [Concomitant]
     Indication: CROHN^S DISEASE
     Dates: start: 20100212
  6. MERCAPTOPURINE [Concomitant]
     Indication: INFLAMMATORY MARKER INCREASED
  7. FORCEVAL [Concomitant]
     Indication: HYPOVITAMINOSIS
     Dates: start: 20100727
  8. FORCEVAL [Concomitant]
     Indication: MINERAL DEFICIENCY
  9. HYDROXOCOBALAMIN [Concomitant]
     Indication: ANAEMIA MACROCYTIC
     Dates: start: 20100112
  10. LOPERAMIDE [Concomitant]
     Indication: GASTROINTESTINAL HYPERMOTILITY
     Dates: start: 20090201
  11. PREDNISONE [Concomitant]
     Indication: CROHN^S DISEASE
     Dosage: 30 mg reducing dose
     Dates: start: 20091031, end: 200911
  12. PREDNISONE [Concomitant]
     Indication: CROHN^S DISEASE

REACTIONS (1)
  - Ileostomy closure [Recovered/Resolved]
